FAERS Safety Report 19139491 (Version 2)
Quarter: 2022Q1

REPORT INFORMATION
  Report Type: Spontaneous
  Country: US (occurrence: US)
  Receive Date: 20210415
  Receipt Date: 20220217
  Transmission Date: 20220424
  Serious: No
  Sender: FDA-Public Use
  Company Number: US-ELI_LILLY_AND_COMPANY-US202104001722

PATIENT
  Age: 42 Year
  Sex: Male

DRUGS (4)
  1. TALTZ [Suspect]
     Active Substance: IXEKIZUMAB
     Indication: Psoriasis
     Dosage: UNK, UNKNOWN
     Route: 065
     Dates: start: 2019
  2. MUPIROCIN [Concomitant]
     Active Substance: MUPIROCIN
     Indication: Skin infection
  3. TRIAMCINOLONE [Concomitant]
     Active Substance: TRIAMCINOLONE
     Indication: Skin infection
  4. CLOBETASOL [Concomitant]
     Active Substance: CLOBETASOL
     Indication: Skin infection

REACTIONS (15)
  - Abnormal faeces [Unknown]
  - Cough [Unknown]
  - Productive cough [Unknown]
  - Pruritus [Unknown]
  - Haemorrhage [Unknown]
  - Irritable bowel syndrome [Unknown]
  - Skin disorder [Unknown]
  - Limb mass [Unknown]
  - Varicose vein [Unknown]
  - Blister [Unknown]
  - Psoriasis [Unknown]
  - Helminthic infection [Unknown]
  - Infection parasitic [Unknown]
  - Sinusitis [Unknown]
  - Staphylococcal skin infection [Unknown]

NARRATIVE: CASE EVENT DATE: 20210331
